FAERS Safety Report 8827309 (Version 7)
Quarter: 2013Q2

REPORT INFORMATION
  Report Type: Report from Study
  Country: US (occurrence: US)
  Receive Date: 20121005
  Receipt Date: 20130425
  Transmission Date: 20140414
  Serious: Yes (Death, Hospitalization)
  Sender: FDA-Public Use
  Company Number: US-ROCHE-1108833

PATIENT
  Age: 73 Year
  Sex: Male
  Weight: 60.84 kg

DRUGS (14)
  1. AVASTIN [Suspect]
     Indication: COLORECTAL CANCER METASTATIC
     Route: 042
     Dates: start: 201001, end: 20110404
  2. AVASTIN [Suspect]
     Route: 042
     Dates: start: 201105
  3. AVASTIN [Suspect]
     Route: 042
     Dates: start: 201101
  4. AVASTIN [Suspect]
     Route: 042
     Dates: start: 20120111, end: 20130129
  5. AVASTIN [Suspect]
     Route: 042
     Dates: start: 20100101
  6. XELODA [Suspect]
     Indication: COLORECTAL CANCER
     Dosage: TWICE DAILY FOR 1 WEEK,EVERY 3 WEEKS
     Route: 042
     Dates: start: 201001
  7. XELODA [Suspect]
     Route: 048
     Dates: end: 201201
  8. OXALIPLATIN [Suspect]
     Indication: COLORECTAL CANCER
     Route: 042
     Dates: start: 20110211, end: 20110404
  9. OXALIPLATIN [Suspect]
     Route: 042
  10. IRINOTECAN [Suspect]
     Indication: COLORECTAL CANCER
     Route: 042
     Dates: start: 201001
  11. DECADRON [Concomitant]
     Route: 048
  12. BENADRYL [Concomitant]
     Route: 048
  13. PROMETHAZINE [Concomitant]
     Route: 048
  14. PROCRIT [Concomitant]
     Indication: HAEMOGLOBIN DECREASED
     Route: 058
     Dates: start: 20121001

REACTIONS (24)
  - Disease progression [Fatal]
  - Renal failure [Not Recovered/Not Resolved]
  - Blood pressure increased [Recovered/Resolved]
  - Blood potassium increased [Unknown]
  - Haematocrit increased [Unknown]
  - Diarrhoea [Not Recovered/Not Resolved]
  - Epistaxis [Not Recovered/Not Resolved]
  - Back pain [Not Recovered/Not Resolved]
  - Infection [Unknown]
  - Back pain [Not Recovered/Not Resolved]
  - Rhinorrhoea [Not Recovered/Not Resolved]
  - Lacrimation increased [Not Recovered/Not Resolved]
  - Constipation [Not Recovered/Not Resolved]
  - Nausea [Recovered/Resolved]
  - White blood cell count decreased [Not Recovered/Not Resolved]
  - Haematemesis [Recovered/Resolved]
  - Diarrhoea [Recovered/Resolved]
  - Dysphagia [Recovering/Resolving]
  - Weight decreased [Not Recovered/Not Resolved]
  - Neutropenia [Unknown]
  - Insomnia [Not Recovered/Not Resolved]
  - Fatigue [Not Recovered/Not Resolved]
  - Memory impairment [Not Recovered/Not Resolved]
  - Blood glucose decreased [Unknown]
